FAERS Safety Report 17981809 (Version 1)
Quarter: 2020Q3

REPORT INFORMATION
  Report Type: Spontaneous
  Country: BE (occurrence: BE)
  Receive Date: 20200706
  Receipt Date: 20200706
  Transmission Date: 20201103
  Serious: Yes (Death, Hospitalization, Other)
  Sender: FDA-Public Use
  Company Number: BE-TEVA-2020-BE-1796705

PATIENT
  Age: 66 Year
  Sex: Female

DRUGS (10)
  1. SUNITINIB [Suspect]
     Active Substance: SUNITINIB
     Indication: PANCREATIC NEUROENDOCRINE TUMOUR METASTATIC
     Route: 065
     Dates: start: 2009, end: 201509
  2. LEVOFOLINIC ACID [Suspect]
     Active Substance: LEVOLEUCOVORIN
     Indication: PANCREATIC NEUROENDOCRINE TUMOUR METASTATIC
     Route: 065
     Dates: start: 201509
  3. DIAZOXIDE [Concomitant]
     Active Substance: DIAZOXIDE
     Indication: PANCREATIC NEUROENDOCRINE TUMOUR METASTATIC
     Route: 065
     Dates: start: 2009, end: 201509
  4. OCTREOTIDE. [Concomitant]
     Active Substance: OCTREOTIDE
     Indication: PANCREATIC NEUROENDOCRINE TUMOUR METASTATIC
     Route: 065
     Dates: start: 2009, end: 201509
  5. OXALIPLATIN INJECTION 50MG/10 ML+100MG/20ML [Suspect]
     Active Substance: OXALIPLATIN
     Indication: PANCREATIC NEUROENDOCRINE TUMOUR METASTATIC
     Route: 065
     Dates: start: 201509
  6. FLUOROURACIL. [Suspect]
     Active Substance: FLUOROURACIL
     Route: 050
     Dates: start: 201509
  7. OCTREOTIDE. [Concomitant]
     Active Substance: OCTREOTIDE
     Indication: PANCREATIC NEUROENDOCRINE TUMOUR METASTATIC
     Dosage: RECEIVED AT AN INCREASED DOSE
     Route: 065
  8. FLUOROURACIL. [Suspect]
     Active Substance: FLUOROURACIL
     Indication: PANCREATIC NEUROENDOCRINE TUMOUR METASTATIC
     Dosage: BOLUS
     Route: 065
     Dates: start: 201509
  9. EVEROLIMUS. [Concomitant]
     Active Substance: EVEROLIMUS
     Indication: PANCREATIC NEUROENDOCRINE TUMOUR METASTATIC
     Route: 065
     Dates: start: 2009, end: 201509
  10. DOXORUBICIN [Concomitant]
     Active Substance: DOXORUBICIN
     Indication: PANCREATIC NEUROENDOCRINE TUMOUR METASTATIC
     Route: 065
     Dates: start: 2009, end: 201509

REACTIONS (2)
  - Hypertension [Unknown]
  - Posterior reversible encephalopathy syndrome [Recovered/Resolved]

NARRATIVE: CASE EVENT DATE: 201506
